FAERS Safety Report 11943348 (Version 1)
Quarter: 2016Q1

REPORT INFORMATION
  Report Type: Spontaneous
  Country: US (occurrence: US)
  Receive Date: 20160125
  Receipt Date: 20160125
  Transmission Date: 20160526
  Serious: No
  Sender: FDA-Public Use
  Company Number: US-UNITED THERAPEUTICS-UNT-2015-013726

PATIENT
  Sex: Female

DRUGS (3)
  1. ORENITRAM [Suspect]
     Active Substance: TREPROSTINIL
     Indication: PULMONARY ARTERIAL HYPERTENSION
     Dosage: 0.375 MG, TID
     Route: 048
     Dates: start: 20150516
  2. ORENITRAM [Suspect]
     Active Substance: TREPROSTINIL
     Indication: PULMONARY HYPERTENSION
     Dosage: 0.375 MG,TID
     Route: 048
     Dates: start: 20150516
  3. BACTRIM [Suspect]
     Active Substance: SULFAMETHOXAZOLE\TRIMETHOPRIM
     Indication: LOCALISED INFECTION
     Dosage: UNK
     Dates: start: 20151115

REACTIONS (7)
  - Localised infection [Unknown]
  - Nausea [Not Recovered/Not Resolved]
  - Drug dose omission [Unknown]
  - Dizziness [Unknown]
  - Drug interaction [Unknown]
  - Drug level increased [Unknown]
  - Hypotension [Unknown]

NARRATIVE: CASE EVENT DATE: 20151027
